FAERS Safety Report 9823815 (Version 2)
Quarter: 2014Q1

REPORT INFORMATION
  Report Type: Spontaneous
  Country: US (occurrence: US)
  Receive Date: 20140116
  Receipt Date: 20140116
  Transmission Date: 20141002
  Serious: No
  Sender: FDA-Public Use
  Company Number: US-GILEAD-2011-0040024

PATIENT
  Age: 58 Year
  Sex: Female

DRUGS (2)
  1. LETAIRIS [Suspect]
     Indication: PRODUCT USED FOR UNKNOWN INDICATION
     Route: 048
     Dates: start: 20110516
  2. FLOLAN [Concomitant]

REACTIONS (4)
  - Pain in jaw [Unknown]
  - Eye irritation [Unknown]
  - Hyperaesthesia [Unknown]
  - Burning sensation [Unknown]
